FAERS Safety Report 18194112 (Version 1)
Quarter: 2020Q3

REPORT INFORMATION
  Report Type: Spontaneous
  Country: HR (occurrence: HR)
  Receive Date: 20200825
  Receipt Date: 20200825
  Transmission Date: 20201103
  Serious: Yes (Other)
  Sender: FDA-Public Use
  Company Number: NVSC2020HR230951

PATIENT
  Age: 43 Year
  Sex: Male
  Weight: 74 kg

DRUGS (3)
  1. AMYZOL [Suspect]
     Active Substance: AMITRIPTYLINE
     Indication: INSOMNIA
  2. RIVOTRIL [Concomitant]
     Active Substance: CLONAZEPAM
     Indication: HYPERTENSION
     Dosage: 0.5 MG (2?3 X 0.5)
     Route: 048
  3. AMYZOL [Suspect]
     Active Substance: AMITRIPTYLINE
     Indication: HYPERTENSION
     Dosage: 35 MG, QD (25 I 10 MG; 35 MG NAVE?ER SVAKI DAN)
     Route: 048
     Dates: start: 20200110

REACTIONS (8)
  - Nausea [Recovered/Resolved]
  - Dry mouth [Recovered/Resolved]
  - Hiccups [Recovered/Resolved]
  - Overdose [Recovered/Resolved]
  - Somnolence [Recovered/Resolved]
  - Ataxia [Recovered/Resolved]
  - Vertigo [Recovered/Resolved]
  - Vision blurred [Recovered/Resolved]

NARRATIVE: CASE EVENT DATE: 20200201
